FAERS Safety Report 23566014 (Version 1)
Quarter: 2024Q1

REPORT INFORMATION
  Report Type: Spontaneous
  Country: US (occurrence: US)
  Receive Date: 20240226
  Receipt Date: 20240226
  Transmission Date: 20240410
  Serious: No
  Sender: FDA-Public Use
  Company Number: US-AMX-007592

PATIENT
  Age: 63 Year
  Sex: Female
  Weight: 43.091 kg

DRUGS (3)
  1. RELYVRIO [Suspect]
     Active Substance: SODIUM PHENYLBUTYRATE\TAURURSODIOL
     Indication: Amyotrophic lateral sclerosis
     Dosage: 1 SACHET ONCE DAILY FOR FIRST 3 WEEKS, THEN 1 SACHET TWICE DAILY
     Route: 048
  2. IMODIUM AD [Concomitant]
     Active Substance: LOPERAMIDE HYDROCHLORIDE
     Indication: Diarrhoea
     Dosage: TIME INTERVAL: 0.33333333 DAYS
     Route: 065
  3. RILUZOLE [Concomitant]
     Active Substance: RILUZOLE
     Indication: Amyotrophic lateral sclerosis
     Route: 065

REACTIONS (2)
  - Vomiting [Unknown]
  - Diarrhoea [Unknown]
